FAERS Safety Report 4286286-5 (Version None)
Quarter: 2004Q1

REPORT INFORMATION
  Report Type: 
  Country: None (occurrence: None)
  Receive Date: 20040129
  Receipt Date: 20030815
  Transmission Date: 20041129
  Serious: Yes (Hospitalization)
  Sender: FDA-Public Use
  Company Number: A001-002-005743

PATIENT
  Age: 93 Year
  Sex: Female
  Weight: 40 kg

DRUGS (7)
  1. ARICEPT [Suspect]
     Indication: AMNESIA
     Dosage: 5 MG, 1 IN 1 D, ORAL;10 MG, 1 IN 1 1,ORAL;15 MG, ORAL;5 MG, 1 IN 1 D, ORAL
     Route: 048
     Dates: start: 20020101, end: 20020101
  2. ARICEPT [Suspect]
     Indication: AMNESIA
     Dosage: 5 MG, 1 IN 1 D, ORAL;10 MG, 1 IN 1 1,ORAL;15 MG, ORAL;5 MG, 1 IN 1 D, ORAL
     Route: 048
     Dates: start: 20020101, end: 20030501
  3. ARICEPT [Suspect]
     Indication: AMNESIA
     Dosage: 5 MG, 1 IN 1 D, ORAL;10 MG, 1 IN 1 1,ORAL;15 MG, ORAL;5 MG, 1 IN 1 D, ORAL
     Route: 048
     Dates: start: 20030501, end: 20030807
  4. ARICEPT [Suspect]
     Indication: AMNESIA
     Dosage: 5 MG, 1 IN 1 D, ORAL;10 MG, 1 IN 1 1,ORAL;15 MG, ORAL;5 MG, 1 IN 1 D, ORAL
     Route: 048
     Dates: start: 20030811
  5. ASPIRIN [Concomitant]
  6. CALCIUM (CALCIUM) [Concomitant]
  7. MULTIVITAMIN [Concomitant]

REACTIONS (2)
  - SYNCOPE [None]
  - URINARY TRACT INFECTION [None]
